FAERS Safety Report 5632560-7 (Version None)
Quarter: 2008Q1

REPORT INFORMATION
  Report Type: 
  Country: None (occurrence: None)
  Receive Date: 20080220
  Receipt Date: 20080208
  Transmission Date: 20080703
  Serious: Yes (Hospitalization)
  Sender: FDA-Public Use
  Company Number: GB-PFIZER INC-2006089417

PATIENT
  Sex: Male
  Weight: 88 kg

DRUGS (3)
  1. SU-011,248 [Suspect]
     Indication: RENAL CELL CARCINOMA
     Route: 048
  2. LISINOPRIL [Concomitant]
     Route: 048
  3. BENDROFLUMETHIAZIDE [Concomitant]
     Route: 048

REACTIONS (1)
  - ATRIAL FIBRILLATION [None]
